FAERS Safety Report 9252937 (Version 1)
Quarter: 2013Q1

REPORT INFORMATION
  Report Type: Spontaneous
  Country: US (occurrence: None)
  Receive Date: 20130305
  Receipt Date: 20130305
  Transmission Date: 20140127
  Serious: Yes (Hospitalization)
  Sender: FDA-Public Use
  Company Number: 163-21880-12090255

PATIENT
  Age: 80 Year
  Sex: Male
  Weight: 78.47 kg

DRUGS (1)
  1. REVLIMID [Suspect]
     Indication: PLASMA CELL MYELOMA
     Dosage: 21 OF 28 DAYS
     Route: 048
     Dates: start: 20100423

REACTIONS (3)
  - Pneumonia [None]
  - Neutropenia [None]
  - Urinary tract infection [None]
